FAERS Safety Report 17046064 (Version 1)
Quarter: 2019Q4

REPORT INFORMATION
  Report Type: Other
  Country: DE (occurrence: DE)
  Receive Date: 20191119
  Receipt Date: 20191119
  Transmission Date: 20200122
  Serious: Yes (Other)
  Sender: FDA-Public Use
  Company Number: DE-LUPIN PHARMACEUTICALS INC.-2019-07332

PATIENT
  Age: 1 Day
  Sex: Female
  Weight: 2.57 kg

DRUGS (6)
  1. MOLSIDOMIN [Suspect]
     Active Substance: MOLSIDOMINE
     Indication: CARDIOVASCULAR EVENT PROPHYLAXIS
     Dosage: 4 MILLIGRAM, QD
     Route: 064
  2. ELEVIT [MINERALS NOS;VITAMINS NOS] [Concomitant]
     Indication: PROPHYLAXIS OF NEURAL TUBE DEFECT
     Dosage: UNK
     Route: 064
  3. PROGESTAN [Concomitant]
     Active Substance: PROGESTERONE
     Indication: PROPHYLAXIS OF ABORTION
     Dosage: 200 MILLIGRAM, BID
     Route: 064
     Dates: start: 20180528, end: 20181129
  4. LAMOTRIGINE. [Suspect]
     Active Substance: LAMOTRIGINE
     Indication: EPILEPSY
     Dosage: 25 MILLIGRAM, BID (2 SEPARATED DOSES)
     Route: 064
     Dates: start: 20180425, end: 20190124
  5. CARBIMAZOLE [Suspect]
     Active Substance: CARBIMAZOLE
     Indication: HYPERTHYROIDISM
     Dosage: 5 MILLIGRAM, QD
     Route: 064
     Dates: start: 20180425, end: 20190124
  6. CLEXANE [Concomitant]
     Active Substance: ENOXAPARIN SODIUM
     Indication: THROMBOSIS PROPHYLAXIS
     Dosage: 40 MILLIGRAM, QD
     Route: 064
     Dates: start: 20180425, end: 20190124

REACTIONS (2)
  - Foetal exposure during pregnancy [Unknown]
  - Small for dates baby [Not Recovered/Not Resolved]

NARRATIVE: CASE EVENT DATE: 20190124
